FAERS Safety Report 4440046-0 (Version None)
Quarter: 2004Q3

REPORT INFORMATION
  Report Type: 
  Country: None (occurrence: None)
  Receive Date: 20040902
  Receipt Date: 20040826
  Transmission Date: 20050211
  Serious: Yes (Hospitalization)
  Sender: FDA-Public Use
  Company Number: DK-BRISTOL-MYERS SQUIBB COMPANY-12684221

PATIENT
  Age: 79 Year
  Sex: Female
  Weight: 58 kg

DRUGS (2)
  1. CISPLATIN [Suspect]
     Indication: BLADDER CANCER
     Dates: start: 20040614, end: 20040614
  2. GEMCITABINE [Suspect]
     Indication: BLADDER CANCER
     Dates: start: 20040612, end: 20040612

REACTIONS (1)
  - SEPSIS [None]
